FAERS Safety Report 16996908 (Version 1)
Quarter: 2019Q4

REPORT INFORMATION
  Report Type: Spontaneous
  Country: US (occurrence: US)
  Receive Date: 20191106
  Receipt Date: 20191106
  Transmission Date: 20200122
  Serious: No
  Sender: FDA-Public Use
  Company Number: US-BRISTOL-MYERS SQUIBB COMPANY-BMS-2019-106468

PATIENT

DRUGS (1)
  1. EMPLICITI [Suspect]
     Active Substance: ELOTUZUMAB
     Indication: PRODUCT USED FOR UNKNOWN INDICATION
     Dosage: SINGLE-DOSE VIALS
     Route: 042
     Dates: start: 201910

REACTIONS (2)
  - Anaemia [Unknown]
  - Red blood cell agglutination [Unknown]

NARRATIVE: CASE EVENT DATE: 201910
